FAERS Safety Report 25952933 (Version 3)
Quarter: 2025Q4

REPORT INFORMATION
  Report Type: Spontaneous
  Country: US (occurrence: US)
  Receive Date: 20251023
  Receipt Date: 20251214
  Transmission Date: 20260118
  Serious: No
  Sender: PFIZER
  Company Number: US-PFIZER INC-202500118081

PATIENT
  Age: 17 Year
  Sex: Female

DRUGS (2)
  1. LITFULO [Suspect]
     Active Substance: RITLECITINIB TOSYLATE
     Indication: Alopecia areata
     Dosage: 50 MG (ONE TABLET BY MOUTH WITH HEAVIEST MEAL AND WATER)
     Route: 048
  2. LITFULO [Suspect]
     Active Substance: RITLECITINIB TOSYLATE
     Dosage: 50 MG

REACTIONS (3)
  - Hypersomnia [Unknown]
  - Migraine [Unknown]
  - Weight increased [Unknown]
